FAERS Safety Report 9991978 (Version 1)
Quarter: 2014Q1

REPORT INFORMATION
  Report Type: Spontaneous
  Country: GB (occurrence: GB)
  Receive Date: 20140310
  Receipt Date: 20140310
  Transmission Date: 20141002
  Serious: Yes (Other)
  Sender: FDA-Public Use
  Company Number: CHNY2014GB000830

PATIENT
  Sex: 0

DRUGS (1)
  1. VOLTAROL [Suspect]
     Indication: LIGAMENT SPRAIN
     Dosage: SIZE OF ONE PENNY RUBBED INTO SKIN OVER AFFECTED SITE.
     Route: 061

REACTIONS (3)
  - Throat tightness [Recovered/Resolved]
  - Chest discomfort [Recovered/Resolved]
  - Rash [Recovered/Resolved]
